FAERS Safety Report 8237674 (Version 5)
Quarter: 2013Q4

REPORT INFORMATION
  Report Type: Spontaneous
  Country: US (occurrence: US)
  Receive Date: 20111109
  Receipt Date: 20131118
  Transmission Date: 20140711
  Serious: No
  Sender: FDA-Public Use
  Company Number: US-ASTRAZENECA-2011SE04441

PATIENT
  Age: 78 Year
  Sex: Female
  Weight: 58.1 kg

DRUGS (11)
  1. NEXIUM [Suspect]
     Indication: GASTROOESOPHAGEAL REFLUX DISEASE
     Dosage: ONCE DAILY
     Route: 048
     Dates: start: 20100712
  2. NEXIUM [Suspect]
     Indication: GASTROOESOPHAGEAL REFLUX DISEASE
     Route: 048
  3. PRILOSEC OTC [Suspect]
     Route: 048
  4. LISINOPRIL [Suspect]
     Route: 048
  5. TRAMADOL [Concomitant]
  6. DIAZEPAM [Concomitant]
  7. PREMPRO [Concomitant]
  8. GAS RELIEVE [Concomitant]
  9. TYLENOL [Concomitant]
  10. ASPIRIN [Concomitant]
  11. VITAMIN D [Concomitant]

REACTIONS (13)
  - Gastrooesophageal reflux disease [Unknown]
  - Nasopharyngitis [Unknown]
  - Nasal congestion [Unknown]
  - Abdominal pain [Unknown]
  - Constipation [Unknown]
  - Blood cholesterol increased [None]
  - Malaise [None]
  - Arthritis [None]
  - Glaucoma [None]
  - Hypertension [None]
  - Depression [None]
  - Drug dose omission [Unknown]
  - Drug effect incomplete [Unknown]
